FAERS Safety Report 16414782 (Version 8)
Quarter: 2020Q2

REPORT INFORMATION
  Report Type: Spontaneous
  Country: US (occurrence: US)
  Receive Date: 20190611
  Receipt Date: 20200515
  Transmission Date: 20200713
  Serious: Yes (Other)
  Sender: FDA-Public Use
  Company Number: US-PFIZER INC-2019179875

PATIENT
  Age: 41 Year
  Sex: Female

DRUGS (4)
  1. LYRICA [Suspect]
     Active Substance: PREGABALIN
     Dosage: UNK, 2X/DAY
     Dates: start: 2016
  2. LYRICA [Suspect]
     Active Substance: PREGABALIN
     Dosage: UNK, 1X/DAY
     Dates: start: 2016
  3. LYRICA [Suspect]
     Active Substance: PREGABALIN
     Dosage: 150 MG, 3X/DAY
  4. LYRICA [Suspect]
     Active Substance: PREGABALIN
     Dosage: 150 MG, 1X/DAY

REACTIONS (12)
  - Limb discomfort [Unknown]
  - Ear congestion [Unknown]
  - Dependence [Unknown]
  - Intentional product misuse [Unknown]
  - Insomnia [Unknown]
  - Skin disorder [Unknown]
  - Contusion [Recovered/Resolved]
  - Hypersensitivity [Unknown]
  - Withdrawal syndrome [Unknown]
  - Pain [Unknown]
  - Dysphonia [Unknown]
  - Tremor [Unknown]
